FAERS Safety Report 16747410 (Version 7)
Quarter: 2020Q3

REPORT INFORMATION
  Report Type: Report from Study
  Country: US (occurrence: US)
  Receive Date: 20190827
  Receipt Date: 20200724
  Transmission Date: 20201102
  Serious: Yes (Hospitalization, Disabling)
  Sender: FDA-Public Use
  Company Number: US-ACTELION-A-NJ2019-194714

PATIENT
  Age: 28 Year
  Sex: Female
  Weight: 51.7 kg

DRUGS (21)
  1. ZAVESCA [Suspect]
     Active Substance: MIGLUSTAT
     Indication: NIEMANN-PICK DISEASE
     Dosage: 200 MG, TID
     Route: 048
     Dates: start: 20170717
  2. PREGABALIN. [Concomitant]
     Active Substance: PREGABALIN
     Dosage: 150 MG, BID
  3. ZAVESCA [Suspect]
     Active Substance: MIGLUSTAT
     Indication: FABRY^S DISEASE
     Dosage: 200 MG, BID
     Route: 048
  4. GABAPENTIN. [Concomitant]
     Active Substance: GABAPENTIN
     Dosage: 500 MG, TID
     Route: 048
     Dates: start: 20180308
  5. IBUPROFEN. [Concomitant]
     Active Substance: IBUPROFEN
     Dosage: 800 MG, TID
     Route: 048
     Dates: start: 20180308
  6. ACETAMINOPHEN. [Concomitant]
     Active Substance: ACETAMINOPHEN
     Dosage: 100 MG, TID
     Route: 048
     Dates: start: 20180308
  7. 2?HYDROXYPROPYL?BETA?CYCLODEXTRIN [Concomitant]
     Dosage: 120000 MG, Q2WEEK
     Dates: start: 201504
  8. CELECOXIB. [Concomitant]
     Active Substance: CELECOXIB
     Dosage: 100 MG, BID
     Route: 048
  9. CLONAZEPAM. [Concomitant]
     Active Substance: CLONAZEPAM
     Dosage: 0.25 MG, BID
     Route: 048
  10. SINGULAIR [Concomitant]
     Active Substance: MONTELUKAST SODIUM
     Dosage: 10 MG, QD
     Route: 048
     Dates: start: 20170714
  11. GABAPENTIN. [Concomitant]
     Active Substance: GABAPENTIN
     Dosage: 1000 MG, TID
  12. VITAMIN D3 [Concomitant]
     Active Substance: CHOLECALCIFEROL
     Dosage: 1000 MG, QD
     Dates: start: 20170714
  13. FLONASE [Concomitant]
     Active Substance: FLUTICASONE PROPIONATE
     Dosage: 2 SPRAY, PRN
     Dates: start: 20170714
  14. SUDAFED [Concomitant]
     Active Substance: PSEUDOEPHEDRINE HYDROCHLORIDE
     Dosage: UNK, PRN
     Route: 048
     Dates: start: 20170714
  15. ATIVAN [Concomitant]
     Active Substance: LORAZEPAM
     Dosage: 1.5 MG, QPM
     Route: 048
     Dates: start: 20180308
  16. MIRTAZEPINE TEVA [Concomitant]
     Active Substance: MIRTAZAPINE
     Dosage: 7.5 MG
  17. AFRIN [Concomitant]
     Active Substance: OXYMETAZOLINE
     Dosage: 1 SPRAY, PRN
     Dates: start: 20170714
  18. 2?HYDROXYPROPYL?BETA?CYCLODEXTRIN [Concomitant]
     Dosage: 600 Q2WEEK
     Route: 042
  19. 2?HYDROXYPROPYL?BETA?CYCLODEXTRIN [Concomitant]
     Dosage: 800 MG, QOW
     Dates: start: 20170714
  20. ACETYLLEUCINE [Concomitant]
     Active Substance: ACETYLLEUCINE
     Dosage: 1500 MG, BID
  21. 2?HYDROXYPROPYL?BETA?CYCLODEXTRIN [Concomitant]
     Dosage: 1500 MG, Q2WEEK
     Route: 042

REACTIONS (10)
  - Pyrexia [Recovered/Resolved]
  - Product dose omission issue [Unknown]
  - Pneumonia aspiration [Recovered/Resolved]
  - Hypophagia [Unknown]
  - Pain [Unknown]
  - Tachypnoea [Recovered/Resolved]
  - Hypoxia [Recovered/Resolved]
  - Gastrointestinal tube insertion [Unknown]
  - Cough [Recovered/Resolved]
  - Weight decreased [Unknown]

NARRATIVE: CASE EVENT DATE: 20191108
